FAERS Safety Report 5817034-2 (Version None)
Quarter: 2008Q3

REPORT INFORMATION
  Report Type: 
  Country: None (occurrence: None)
  Receive Date: 20080722
  Receipt Date: 20080714
  Transmission Date: 20090109
  Serious: Yes (Hospitalization)
  Sender: FDA-Public Use
  Company Number: HK-BRISTOL-MYERS SQUIBB COMPANY-14267538

PATIENT
  Age: 55 Year
  Sex: Male
  Weight: 62 kg

DRUGS (3)
  1. CETUXIMAB [Suspect]
     Indication: NASOPHARYNGEAL CANCER
     Dosage: 2 DOSAGE FORM = 2 MG/ML
     Route: 042
     Dates: start: 20080709, end: 20080709
  2. CISPLATIN [Suspect]
     Indication: NASOPHARYNGEAL CANCER
     Route: 042
     Dates: start: 20080709, end: 20080709
  3. RADIOTHERAPY [Suspect]
     Indication: NASOPHARYNGEAL CANCER

REACTIONS (1)
  - DYSPHAGIA [None]
